FAERS Safety Report 10267815 (Version 1)
Quarter: 2014Q2

REPORT INFORMATION
  Report Type: Spontaneous
  Country: US (occurrence: US)
  Receive Date: 20140630
  Receipt Date: 20140630
  Transmission Date: 20141212
  Serious: Yes (Hospitalization)
  Sender: FDA-Public Use
  Company Number: US-BAYER-2014-095290

PATIENT
  Age: 24 Year
  Sex: Female
  Weight: 88.44 kg

DRUGS (4)
  1. OCELLA [Suspect]
  2. IBUPROFEN [Concomitant]
     Dosage: 200 MG, UNK
     Route: 048
     Dates: start: 20111107
  3. ADVIL [Concomitant]
     Dosage: 200 MG, UNK
     Route: 048
     Dates: start: 20111107
  4. MOTRIN [Concomitant]
     Dosage: 200 MG, UNK
     Route: 048
     Dates: start: 20111107

REACTIONS (2)
  - Pulmonary embolism [None]
  - Deep vein thrombosis [Recovered/Resolved]
